FAERS Safety Report 7221458-9 (Version None)
Quarter: 2010Q4

REPORT INFORMATION
  Report Type: 
  Country: None (occurrence: None)
  Receive Date: 20101230
  Receipt Date: 20101217
  Transmission Date: 20110411
  Serious: Yes (Other)
  Sender: FDA-Public Use
  Company Number: 2010P1003457

PATIENT
  Age: 86 Year
  Sex: Male

DRUGS (1)
  1. WARFARIN SODIUM [Suspect]
     Dosage: 5 MG;QD 5X/WK; PO, 2.5 MG;QD 2X/WK;PO
     Route: 048

REACTIONS (6)
  - ASTHENIA [None]
  - DYSSTASIA [None]
  - FALL [None]
  - HIP FRACTURE [None]
  - THROMBOSIS [None]
  - TREMOR [None]
